FAERS Safety Report 7756983 (Version 6)
Quarter: 2018Q3

REPORT INFORMATION
  Report Type: Spontaneous
  Country: JP (occurrence: JP)
  Receive Date: 20110112
  Receipt Date: 20180723
  Transmission Date: 20181010
  Serious: Yes (Death, Hospitalization)
  Sender: FDA-Public Use
  Company Number: JP-BAYER-2011-001236

PATIENT
  Age: 86 Year
  Sex: Female
  Weight: 40 kg

DRUGS (12)
  1. CEROCRAL [Concomitant]
     Active Substance: IFENPRODIL
     Dosage: DAILY DOSE 60 MG
     Route: 048
  2. LASIX [Concomitant]
     Active Substance: FUROSEMIDE
     Dosage: UNK
     Route: 065
     Dates: start: 20110118
  3. ALANTA SF [Concomitant]
     Dosage: DAILY DOSE 100 MG
     Route: 048
  4. VESICARE [Concomitant]
     Active Substance: SOLIFENACIN SUCCINATE
     Dosage: DAILY DOSE 5 MG
     Route: 048
  5. AMLODIN [Concomitant]
     Active Substance: AMLODIPINE BESYLATE
     Dosage: DAILY DOSE 5 MG
     Route: 048
  6. SENNARIDE [Concomitant]
     Active Substance: SENNOSIDES A AND B
     Dosage: DAILY DOSE 36 MG
     Route: 048
  7. NEO?MINOPHAGEN C [Concomitant]
     Active Substance: AMMONIUM GLYCYRRHIZATE
     Dosage: UNK
     Route: 042
     Dates: start: 20110102, end: 20110124
  8. GASMOTIN [Concomitant]
     Active Substance: MOSAPRIDE CITRATE
     Dosage: DAILY DOSE 5 MG
     Route: 048
  9. AVELOX [Suspect]
     Active Substance: MOXIFLOXACIN HYDROCHLORIDE
     Indication: UPPER RESPIRATORY TRACT INFLAMMATION
     Dosage: 400 MG, QD
     Route: 048
     Dates: start: 20101228, end: 20110101
  10. NEO?MINOPHAGEN C [Concomitant]
     Active Substance: AMMONIUM GLYCYRRHIZATE
     Dosage: DAILY DOSE 2 DF
     Route: 042
     Dates: start: 20110102, end: 20110124
  11. PARIET [Concomitant]
     Active Substance: RABEPRAZOLE SODIUM
     Dosage: DAILY DOSE 10 MG
     Route: 048
  12. MAGMITT [Concomitant]
     Active Substance: MAGNESIUM OXIDE
     Dosage: DAILY DOSE 330 MG
     Route: 048

REACTIONS (7)
  - Hypoglycaemic coma [Fatal]
  - Malaise [Fatal]
  - Respiratory failure [Fatal]
  - Dehydration [Fatal]
  - Circulatory collapse [Fatal]
  - Drug-induced liver injury [Fatal]
  - Hypoproteinaemia [Fatal]

NARRATIVE: CASE EVENT DATE: 20110101
